FAERS Safety Report 18361783 (Version 2)
Quarter: 2020Q4

REPORT INFORMATION
  Report Type: Spontaneous
  Country: US (occurrence: US)
  Receive Date: 20201008
  Receipt Date: 20201016
  Transmission Date: 20210114
  Serious: Yes (Hospitalization, Other)
  Sender: FDA-Public Use
  Company Number: US-ASTRAZENECA-2020SF27234

PATIENT
  Age: 16070 Day
  Sex: Male
  Weight: 99.8 kg

DRUGS (48)
  1. FARXIGA [Suspect]
     Active Substance: DAPAGLIFLOZIN PROPANEDIOL
     Indication: HYPOTENSION
     Route: 048
     Dates: start: 20161109
  2. LOSARTAN. [Concomitant]
     Active Substance: LOSARTAN
     Dates: start: 20180522
  3. IVERMECTIN. [Concomitant]
     Active Substance: IVERMECTIN
     Dates: start: 20160819
  4. INVOKANA [Concomitant]
     Active Substance: CANAGLIFLOZIN
     Dates: start: 20160819
  5. GABAPENTIN. [Concomitant]
     Active Substance: GABAPENTIN
     Dates: start: 20170616
  6. SENNA [Concomitant]
     Active Substance: SENNA LEAF\SENNOSIDES\SENNOSIDES A AND B
     Dates: start: 20170717
  7. VANCOMYCIN [Concomitant]
     Active Substance: VANCOMYCIN
     Dates: start: 20170712
  8. GEMFIBROZIL. [Concomitant]
     Active Substance: GEMFIBROZIL
     Dates: start: 20060109
  9. OMACOR [Concomitant]
     Active Substance: OMEGA-3-ACID ETHYL ESTERS
     Dates: start: 20060109
  10. FARXIGA [Suspect]
     Active Substance: DAPAGLIFLOZIN PROPANEDIOL
     Indication: WEIGHT DECREASED
     Route: 048
     Dates: start: 20161108, end: 20170626
  11. FARXIGA [Suspect]
     Active Substance: DAPAGLIFLOZIN PROPANEDIOL
     Indication: TYPE 2 DIABETES MELLITUS
     Route: 048
     Dates: start: 20161109
  12. CITALOPRAM [Concomitant]
     Active Substance: CITALOPRAM HYDROBROMIDE
     Dates: start: 20180522
  13. ATORVASTATIN [Concomitant]
     Active Substance: ATORVASTATIN
     Dates: start: 20180522
  14. METFORMIN [Concomitant]
     Active Substance: METFORMIN HYDROCHLORIDE
     Dates: start: 20180522
  15. NIFEDIPINE. [Concomitant]
     Active Substance: NIFEDIPINE
     Dates: start: 20170616
  16. HEPARIN [Concomitant]
     Active Substance: HEPARIN SODIUM
     Dates: start: 20170712
  17. ACTOS [Concomitant]
     Active Substance: PIOGLITAZONE HYDROCHLORIDE
     Dates: start: 20060109
  18. PROPOFOL. [Concomitant]
     Active Substance: PROPOFOL
     Dates: start: 20060109
  19. METRONIDAZOLE. [Concomitant]
     Active Substance: METRONIDAZOLE
     Dates: start: 20060109
  20. FARXIGA [Suspect]
     Active Substance: DAPAGLIFLOZIN PROPANEDIOL
     Indication: HYPOTENSION
     Route: 048
     Dates: start: 20161108, end: 20170626
  21. AZITHROMYCIN ANHYDROUS. [Concomitant]
     Active Substance: AZITHROMYCIN ANHYDROUS
     Dates: start: 20180611
  22. CIPROFLOXACIN. [Concomitant]
     Active Substance: CIPROFLOXACIN
     Dates: start: 20170714
  23. OXYCODONE [Concomitant]
     Active Substance: OXYCODONE
     Dates: start: 20170713
  24. DOCUSATE [Concomitant]
     Active Substance: DOCUSATE
     Dates: start: 20170712
  25. LEVOFLOXACIN. [Concomitant]
     Active Substance: LEVOFLOXACIN
     Dates: start: 20060109
  26. SULFAMETHOXAZOLE-TMP [Concomitant]
     Active Substance: SULFAMETHOXAZOLE\TRIMETHOPRIM
     Dates: start: 20170927
  27. SCOPOLAMINE [Concomitant]
     Active Substance: SCOPOLAMINE
     Dates: start: 20170712
  28. FARXIGA [Suspect]
     Active Substance: DAPAGLIFLOZIN PROPANEDIOL
     Indication: WEIGHT DECREASED
     Route: 048
     Dates: start: 20161109
  29. TEMAZEPAM. [Concomitant]
     Active Substance: TEMAZEPAM
     Dates: start: 20180522
  30. PERMETHRIN. [Concomitant]
     Active Substance: PERMETHRIN
     Dates: start: 20160819
  31. TRIAMCINOLONE [Concomitant]
     Active Substance: TRIAMCINOLONE
     Dates: start: 20160819
  32. BETAMETHASONE. [Concomitant]
     Active Substance: BETAMETHASONE
     Dates: start: 20160809
  33. HYDROCODONE-ACETAMIN [Concomitant]
     Active Substance: ACETAMINOPHEN\HYDROCODONE
     Dates: start: 20170927
  34. HUMALOG [Concomitant]
     Active Substance: INSULIN LISPRO
     Dates: start: 20170814
  35. ESCITALOPRAM [Concomitant]
     Active Substance: ESCITALOPRAM OXALATE
     Dates: start: 20170713
  36. JANUVIA [Concomitant]
     Active Substance: SITAGLIPTIN PHOSPHATE
     Dates: start: 20060109
  37. BUPROPION. [Concomitant]
     Active Substance: BUPROPION
     Dates: start: 20060109
  38. FARXIGA [Suspect]
     Active Substance: DAPAGLIFLOZIN PROPANEDIOL
     Indication: TYPE 2 DIABETES MELLITUS
     Route: 048
     Dates: start: 20161108, end: 20170626
  39. VICTOZA [Concomitant]
     Active Substance: LIRAGLUTIDE
     Dates: start: 20180522
  40. HYDROCHLOROTHIAZIDE. [Concomitant]
     Active Substance: HYDROCHLOROTHIAZIDE
     Dates: start: 20160809
  41. LIDOCAINE. [Concomitant]
     Active Substance: LIDOCAINE
     Dates: start: 20170616
  42. FAMOTIDINE. [Concomitant]
     Active Substance: FAMOTIDINE
     Dates: start: 20170717
  43. NOVOLOG [Concomitant]
     Active Substance: INSULIN ASPART
     Dates: start: 20160809
  44. FENOFIBRATE. [Concomitant]
     Active Substance: FENOFIBRATE
     Dates: start: 20160809
  45. FENTANYL. [Concomitant]
     Active Substance: FENTANYL
     Dates: start: 20170712
  46. CELEBREX [Concomitant]
     Active Substance: CELECOXIB
     Dates: start: 20060109
  47. METOCLOPRAMIDE. [Concomitant]
     Active Substance: METOCLOPRAMIDE
     Dates: start: 20060109
  48. MICONAZOLE. [Concomitant]
     Active Substance: MICONAZOLE
     Dates: start: 20060109

REACTIONS (16)
  - Sepsis [Unknown]
  - Cellulitis [Unknown]
  - Pain [Unknown]
  - Fournier^s gangrene [Unknown]
  - Colon gangrene [Unknown]
  - Perineal abscess [Unknown]
  - Rectal abscess [Unknown]
  - Perirectal abscess [Unknown]
  - Abscess limb [Unknown]
  - Anal incontinence [Unknown]
  - Deformity [Unknown]
  - Scar [Unknown]
  - Nerve injury [Unknown]
  - Infected dermal cyst [Unknown]
  - Scrotal abscess [Unknown]
  - Cellulitis of male external genital organ [Unknown]

NARRATIVE: CASE EVENT DATE: 20170414
